FAERS Safety Report 10656984 (Version 1)
Quarter: 2014Q4

REPORT INFORMATION
  Report Type: Spontaneous
  Country: IN (occurrence: IN)
  Receive Date: 20141217
  Receipt Date: 20141217
  Transmission Date: 20150529
  Serious: Yes (Hospitalization)
  Sender: FDA-Public Use
  Company Number: IN-SUN PHARMACEUTICAL INDUSTRIES LTD-2014SUN02809

PATIENT
  Age: 30 Year
  Sex: Male

DRUGS (2)
  1. ALCOHOL. [Interacting]
     Active Substance: ALCOHOL
     Indication: PRODUCT USED FOR UNKNOWN INDICATION
     Route: 048
  2. ALPRAZOLAM TABS C-IV 0.5MG [Suspect]
     Active Substance: ALPRAZOLAM
     Indication: PRODUCT USED FOR UNKNOWN INDICATION
     Dosage: 0.5 MG, DOSES VARIED
     Route: 065

REACTIONS (4)
  - Substance-induced psychotic disorder [Recovered/Resolved]
  - Catatonia [Recovered/Resolved]
  - Alcohol interaction [Recovered/Resolved]
  - Drug dependence [Unknown]
